FAERS Safety Report 9695141 (Version 4)
Quarter: 2013Q4

REPORT INFORMATION
  Report Type: Spontaneous
  Country: JP (occurrence: JP)
  Receive Date: 20131119
  Receipt Date: 20131205
  Transmission Date: 20140711
  Serious: Yes (Death)
  Sender: FDA-Public Use
  Company Number: JP-JNJFOC-20131103763

PATIENT
  Age: 89 Year
  Sex: 0

DRUGS (3)
  1. TRAMCET [Suspect]
     Indication: PAIN
     Dosage: 3 DOSE ONCE A DAY
     Route: 048
     Dates: start: 201309
  2. DIGOSIN [Suspect]
     Indication: PRODUCT USED FOR UNKNOWN INDICATION
     Route: 048
  3. CELECOX [Concomitant]
     Route: 048

REACTIONS (1)
  - Death [Fatal]
